FAERS Safety Report 5132506-4 (Version None)
Quarter: 2006Q4

REPORT INFORMATION
  Report Type: 
  Country: None (occurrence: None)
  Receive Date: 20061017
  Receipt Date: 20060929
  Transmission Date: 20070319
  Serious: Yes (Hospitalization)
  Sender: FDA-Public Use
  Company Number: US200610000266

PATIENT
  Sex: Female

DRUGS (5)
  1. CYMBALTA [Suspect]
     Indication: BIPOLAR II DISORDER
  2. GEODON [Concomitant]
  3. XANAX /USA/ (ALPRAZOLAM) [Concomitant]
  4. TRILEPTAL [Concomitant]
  5. LAMICTAL [Concomitant]

REACTIONS (1)
  - RENAL FAILURE [None]
